FAERS Safety Report 4831135-7 (Version None)
Quarter: 2005Q4

REPORT INFORMATION
  Report Type: 
  Country: None (occurrence: None)
  Receive Date: 20051118
  Receipt Date: 20050927
  Transmission Date: 20060501
  Serious: Yes (Other)
  Sender: FDA-Public Use
  Company Number: PHFR2005GB03223

PATIENT
  Age: 25 Year
  Sex: Female

DRUGS (4)
  1. CLOZARIL [Suspect]
     Indication: SCHIZOPHRENIA
     Dosage: 275MG DAILY
     Route: 048
  2. CLOZARIL [Suspect]
     Dosage: 550MG/DAY
     Route: 048
     Dates: start: 20050304
  3. MIRTAZAPINE [Concomitant]
     Indication: DEPRESSION
     Dosage: 30MG DAILY
     Route: 048
     Dates: start: 20041214
  4. MOVICOL [Concomitant]
     Indication: CONSTIPATION
     Dosage: 1 SACHET
     Route: 048
     Dates: start: 20050401

REACTIONS (4)
  - DYSKINESIA [None]
  - FALL [None]
  - LOSS OF CONSCIOUSNESS [None]
  - PHOTOPSIA [None]
